FAERS Safety Report 16771377 (Version 1)
Quarter: 2019Q3

REPORT INFORMATION
  Report Type: Spontaneous
  Country: US (occurrence: US)
  Receive Date: 20190904
  Receipt Date: 20190904
  Transmission Date: 20191005
  Serious: Yes (Other)
  Sender: FDA-Public Use
  Company Number: US-PFIZER INC-2019374972

PATIENT
  Age: 50 Year
  Sex: Female
  Weight: 119.29 kg

DRUGS (24)
  1. ASPIRIN EC [Concomitant]
     Active Substance: ASPIRIN
     Indication: ATRIOVENTRICULAR BLOCK
  2. AMITRIPTYLINE [Concomitant]
     Active Substance: AMITRIPTYLINE
     Indication: DIABETIC NEUROPATHY
     Dosage: 100 MG, 1X/DAY[100 MG AT BEDTIME BY MOUTH ]
     Route: 048
     Dates: start: 1999
  3. CELEXA [Concomitant]
     Active Substance: CITALOPRAM HYDROBROMIDE
     Indication: CRYING
     Dosage: 40 MG, UNK
     Dates: start: 199912
  4. SENNA LAXATIVE [Concomitant]
     Active Substance: SENNOSIDES
     Dosage: 4 DF, 1X/DAY 8.6 OR 8.8. MG NOT SURE THE DOSE 4 PILLS AT BEDTIME
     Dates: start: 1995
  5. CHANTIX [Suspect]
     Active Substance: VARENICLINE TARTRATE
     Indication: SMOKING CESSATION THERAPY
     Dosage: 0.5 MG, 1X/DAY[A DAY FOR FOUR DAYS]
  6. LIDOCAINE. [Concomitant]
     Active Substance: LIDOCAINE
     Indication: ROUTINE HEALTH MAINTENANCE
     Dosage: ONE PATCH ON FOR 12 HOURS AND TAKE IT OFF
     Dates: start: 201902
  7. HUMULIN NOS [Concomitant]
     Active Substance: INSULIN HUMAN
     Indication: TYPE 1 DIABETES MELLITUS
     Dosage: 146 IU, DAILY  [98 UNITS IN THE MORNING AND 48 UNITS AT NIGHT BY NEEDLE PEN INJECTION]
     Dates: start: 200505
  8. ASPIRIN EC [Concomitant]
     Active Substance: ASPIRIN
     Indication: PERIPHERAL ARTERY OCCLUSION
     Dosage: 325 MG, 1X/DAY
     Route: 048
     Dates: start: 201011
  9. ELIQUIS [Concomitant]
     Active Substance: APIXABAN
     Indication: PERIPHERAL ARTERY OCCLUSION
     Dosage: 5 MG, 2X/DAY[5 MG ONCE IN THE MORNING AND ONCE AT NIGHT]
     Dates: start: 201011
  10. ELIQUIS [Concomitant]
     Active Substance: APIXABAN
     Indication: ATRIOVENTRICULAR BLOCK
  11. CELEXA [Concomitant]
     Active Substance: CITALOPRAM HYDROBROMIDE
     Dosage: 20 MG, UNK
  12. PROLIA [Concomitant]
     Active Substance: DENOSUMAB
     Indication: ROUTINE HEALTH MAINTENANCE
     Dosage: 2 PUFFS FOUR TIMES A DAY
     Dates: start: 1993
  13. PLAVIX [Concomitant]
     Active Substance: CLOPIDOGREL BISULFATE
     Indication: ATRIOVENTRICULAR BLOCK
  14. OXYCODONE [Concomitant]
     Active Substance: OXYCODONE
     Indication: ROUTINE HEALTH MAINTENANCE
     Dosage: 15 MG EIGHT PER DAY
     Dates: start: 2005
  15. SPIRONOLACTONE. [Concomitant]
     Active Substance: SPIRONOLACTONE
     Indication: HAIR GROWTH RATE ABNORMAL
     Dosage: 25 MG, 1X/DAY[25 MG ONCE A DAY BY MOUTH]
     Route: 048
     Dates: start: 2014
  16. FENTANYL. [Concomitant]
     Active Substance: FENTANYL
     Indication: ROUTINE HEALTH MAINTENANCE
     Dosage: 100MCG ONE PATCH ON EVERY 3 DAYS]
     Dates: start: 2007
  17. AMITIZA [Concomitant]
     Active Substance: LUBIPROSTONE
     Indication: DYSPEPSIA
     Dosage: 24 UG, 2X/DAY
     Route: 048
     Dates: start: 200811
  18. PLAVIX [Concomitant]
     Active Substance: CLOPIDOGREL BISULFATE
     Indication: PERIPHERAL ARTERY OCCLUSION
     Dosage: 75 MG, 1X/DAY
     Route: 048
     Dates: start: 201011
  19. GABAPENTIN. [Concomitant]
     Active Substance: GABAPENTIN
     Indication: DIABETIC NEUROPATHY
     Dosage: 1200 MG, 3X/DAY[600 MG TWO, THREE TIMES A DAY BY MOUTH   ]
     Route: 048
     Dates: start: 1996
  20. ADVAIR HFA [Concomitant]
     Active Substance: FLUTICASONE PROPIONATE\SALMETEROL XINAFOATE
     Indication: ROUTINE HEALTH MAINTENANCE
     Dosage: 1 PUFF PER DAY
  21. CHANTIX [Suspect]
     Active Substance: VARENICLINE TARTRATE
     Dosage: 0.5 MG, 2X/DAY[0.5 MG TWICE A DAY FOR FOUR DAYS ]
  22. CHANTIX [Suspect]
     Active Substance: VARENICLINE TARTRATE
     Dosage: 1 MG, 2X/DAY
  23. PANTOPRAZOLE [Concomitant]
     Active Substance: PANTOPRAZOLE
     Indication: GASTROOESOPHAGEAL REFLUX DISEASE
     Dosage: 40 MG, 1X/DAY
     Route: 048
     Dates: start: 200705
  24. SUCRALFATE. [Concomitant]
     Active Substance: SUCRALFATE
     Indication: GASTROOESOPHAGEAL REFLUX DISEASE
     Dosage: 1 G, 3X/DAY
     Route: 048
     Dates: start: 200505

REACTIONS (3)
  - Blood glucose decreased [Unknown]
  - Asthenia [Recovering/Resolving]
  - Nausea [Unknown]
